FAERS Safety Report 7326766-9 (Version None)
Quarter: 2011Q1

REPORT INFORMATION
  Report Type: 
  Country: None (occurrence: None)
  Receive Date: 20110216
  Receipt Date: 20110207
  Transmission Date: 20110831
  Serious: No
  Sender: FDA-Public Use
  Company Number: B0699695A

PATIENT
  Age: 23 Year
  Sex: Female

DRUGS (9)
  1. FERROUS SULFATE (GENERIC) (FERROUS SULFATE) [Suspect]
     Dosage: 325 MG
  2. PRENATAL VITAMINS (PRENATAL VITAMINS) [Suspect]
  3. BETAMETHASONE [Suspect]
     Indication: PREMATURE RUPTURE OF MEMBRANES
     Dosage: 12 MG, INTRAMUSCULAR
     Route: 030
  4. AMPICILLIN TRIHYDRATE [Suspect]
     Dosage: INTRAVENOUS
     Route: 042
  5. ANESTHETIC (ANESTHETIC) [Suspect]
  6. RANITIDINE HYDROCHLORIDE [Suspect]
     Dosage: 75 MG TWICE PER DAY
  7. ERYTHROMYCIN (GENERIC) (ERYTHROMYCIN) [Suspect]
     Dosage: INTRAVENOUS
     Route: 042
  8. POTASSIUM CHLORIDE [Suspect]
  9. LACTATED RINGER'S [Suspect]

REACTIONS (8)
  - CAESAREAN SECTION [None]
  - MUSCULAR WEAKNESS [None]
  - PREMATURE RUPTURE OF MEMBRANES [None]
  - PARALYSIS [None]
  - ANAEMIA [None]
  - PREMATURE LABOUR [None]
  - BLOOD MAGNESIUM DECREASED [None]
  - HYPOKALAEMIA [None]
